FAERS Safety Report 11037732 (Version 1)
Quarter: 2015Q2

REPORT INFORMATION
  Report Type: Spontaneous
  Country: FR (occurrence: FR)
  Receive Date: 20150416
  Receipt Date: 20150416
  Transmission Date: 20150821
  Serious: Yes (Hospitalization)
  Sender: FDA-Public Use
  Company Number: FR-009507513-1504FRA009368

PATIENT
  Age: 92 Year
  Sex: Female

DRUGS (6)
  1. TIENAM IV 250MG/250MG, POUDRE POUR PERFUSION [Suspect]
     Active Substance: CILASTATIN SODIUM\IMIPENEM
     Dosage: UNK
     Route: 042
     Dates: start: 201309, end: 201309
  2. VENLAFAXINE HYDROCHLORIDE. [Concomitant]
     Active Substance: VENLAFAXINE HYDROCHLORIDE
     Dosage: 37.5, 1 DF MORNING
  3. LYRICA [Concomitant]
     Active Substance: PREGABALIN
     Dosage: 1 0 1
  4. DORIBAX [Suspect]
     Active Substance: DORIPENEM
     Indication: CYSTITIS
     Dosage: TOTAL DAILY DOSE: 1/100 DF
     Route: 042
     Dates: start: 2013, end: 2013
  5. BROMAZEPAM [Concomitant]
     Active Substance: BROMAZEPAM
     Dosage: 1/4 TABLET MORNING AND 1/2 TABLET EVENING
  6. DOLIPRANE [Concomitant]
     Active Substance: ACETAMINOPHEN
     Dosage: UNK

REACTIONS (1)
  - Toxic skin eruption [Recovered/Resolved]

NARRATIVE: CASE EVENT DATE: 201309
